FAERS Safety Report 14700856 (Version 1)
Quarter: 2020Q3

REPORT INFORMATION
  Report Type: Report from Study
  Country: RO (occurrence: RO)
  Receive Date: 20180330
  Receipt Date: 20180330
  Transmission Date: 20201105
  Serious: Yes (Hospitalization)
  Sender: FDA-Public Use
  Company Number: RO-TORRENT-00000049

PATIENT
  Age: 66 Year
  Sex: Female
  Weight: 103 kg

DRUGS (12)
  1. AMLODIPINE BESILATE [Suspect]
     Active Substance: AMLODIPINE BESYLATE
     Indication: HYPERTENSION
     Route: 048
     Dates: start: 2010, end: 20160218
  2. GLIQUIDONE [Suspect]
     Active Substance: GLIQUIDONE
     Indication: TYPE 2 DIABETES MELLITUS
     Route: 048
     Dates: start: 2010
  3. CLOPIDOGREL [Suspect]
     Active Substance: CLOPIDOGREL BISULFATE
     Indication: PERIPHERAL VENOUS DISEASE
     Route: 048
     Dates: start: 20160218
  4. ALLOPURINOLUM [Concomitant]
     Indication: HYPERURICAEMIA
     Route: 048
     Dates: start: 2012, end: 20160218
  5. ACIDUM FOLICUM [Concomitant]
     Active Substance: FOLIC ACID
     Indication: ANAEMIA
     Route: 048
     Dates: start: 20150730
  6. LEVOTHYROXINE. [Concomitant]
     Active Substance: LEVOTHYROXINE
     Indication: HYPERURICAEMIA
     Route: 048
     Dates: start: 2010
  7. ROXADUSTAT. [Suspect]
     Active Substance: ROXADUSTAT
     Indication: ANAEMIA
     Dosage: 100 MG, 3 TIMES WEEKLY (WEEK 0?6)
     Route: 048
     Dates: start: 20150915, end: 20151107
  8. DIOSMIN [Concomitant]
     Active Substance: DIOSMIN
     Indication: PERIPHERAL VENOUS DISEASE
     Route: 048
     Dates: start: 20140620, end: 20150920
  9. LANTUS [Suspect]
     Active Substance: INSULIN GLARGINE
     Indication: TYPE 2 DIABETES MELLITUS
     Dosage: 16 IU, ONCE DAILY  (AFTERNOON)
     Route: 058
     Dates: start: 2010
  10. DIPYRIDAMOLE. [Concomitant]
     Active Substance: DIPYRIDAMOLE
     Indication: HYPERTENSION
     Route: 048
     Dates: start: 2010, end: 20160218
  11. SORTIS [Concomitant]
     Active Substance: ATORVASTATIN
     Indication: DYSLIPIDAEMIA
     Route: 048
     Dates: start: 2010
  12. ACETYLSALICYLIC ACID [Suspect]
     Active Substance: ASPIRIN
     Indication: HYPERTENSION
     Route: 048
     Dates: start: 2010

REACTIONS (1)
  - Gastrointestinal haemorrhage [Recovered/Resolved]

NARRATIVE: CASE EVENT DATE: 20160302
